FAERS Safety Report 9639918 (Version 1)
Quarter: 2013Q4

REPORT INFORMATION
  Report Type: Spontaneous
  Country: US (occurrence: None)
  Receive Date: 20131021
  Receipt Date: 20131021
  Transmission Date: 20140711
  Serious: No
  Sender: FDA-Public Use
  Company Number: None

PATIENT
  Age: 77 Year
  Sex: Female
  Weight: 112.49 kg

DRUGS (7)
  1. OXYBUTYNIN [Suspect]
     Indication: BLADDER DISORDER
     Dosage: 10 MG ER 1 PER DAY DAILY BY MOUTH
     Route: 048
  2. AZOR [Concomitant]
  3. SIMVASTATIN [Concomitant]
  4. FLONASE [Concomitant]
  5. CALCIUM W/VIT D [Concomitant]
  6. L-ARGENINE [Concomitant]
  7. COQ10 [Concomitant]

REACTIONS (1)
  - Aphasia [None]
